FAERS Safety Report 24569496 (Version 1)
Quarter: 2024Q4

REPORT INFORMATION
  Report Type: Spontaneous
  Country: DE (occurrence: DE)
  Receive Date: 20241031
  Receipt Date: 20241031
  Transmission Date: 20250114
  Serious: Yes (Hospitalization, Other)
  Sender: QUAGEN PHARMACEUTICALS
  Company Number: DE-QUAGEN-2024QUALIT00357

PATIENT
  Age: 57 Year
  Sex: Male

DRUGS (11)
  1. TRIAMCINOLONE ACETONIDE [Suspect]
     Active Substance: TRIAMCINOLONE ACETONIDE
     Indication: Pachymeningitis
     Route: 037
  2. TRIAMCINOLONE ACETONIDE [Suspect]
     Active Substance: TRIAMCINOLONE ACETONIDE
     Route: 037
  3. DEXAMETHASONE [Suspect]
     Active Substance: DEXAMETHASONE
     Indication: Pachymeningitis
     Route: 065
  4. METHYLPREDNISOLONE [Suspect]
     Active Substance: METHYLPREDNISOLONE
     Indication: Pachymeningitis
     Route: 042
  5. PREDNISOLONE [Suspect]
     Active Substance: PREDNISOLONE
     Indication: Pachymeningitis
     Route: 048
  6. METHOTREXATE [Concomitant]
     Active Substance: METHOTREXATE
     Indication: Pachymeningitis
     Dosage: UP TO 20 MG PER WEEK
     Route: 048
  7. CYTARABINE [Concomitant]
     Active Substance: CYTARABINE
     Indication: Pachymeningitis
     Route: 065
  8. RITUXIMAB [Concomitant]
     Active Substance: RITUXIMAB
     Indication: Pachymeningitis
     Route: 065
  9. RITUXIMAB [Concomitant]
     Active Substance: RITUXIMAB
     Route: 042
  10. INFLIXIMAB [Concomitant]
     Active Substance: INFLIXIMAB
     Indication: Pachymeningitis
     Route: 042
  11. MYCOPHENOLATE MOFETIL [Concomitant]
     Active Substance: MYCOPHENOLATE MOFETIL
     Indication: Pachymeningitis
     Route: 065

REACTIONS (2)
  - Substance-induced psychotic disorder [Unknown]
  - Product use in unapproved indication [Unknown]
